FAERS Safety Report 16962042 (Version 1)
Quarter: 2019Q4

REPORT INFORMATION
  Report Type: Spontaneous
  Country: US (occurrence: US)
  Receive Date: 20191024
  Receipt Date: 20191024
  Transmission Date: 20200122
  Serious: No
  Sender: FDA-Public Use
  Company Number: None

PATIENT
  Age: 54 Year
  Sex: Female

DRUGS (1)
  1. ESTRADIOL 0.1 MG/DAY TRANSDERMAL SYSTEM (TWICE-WEEKLY) [Suspect]
     Active Substance: ESTRADIOL
     Dosage: ?          OTHER FREQUENCY:TWICE WEEKLY;?
     Route: 062
     Dates: start: 20190919

REACTIONS (2)
  - Application site rash [None]
  - Device adhesion issue [None]

NARRATIVE: CASE EVENT DATE: 20190919
